FAERS Safety Report 14882402 (Version 1)
Quarter: 2018Q2

REPORT INFORMATION
  Report Type: Spontaneous
  Country: ES (occurrence: ES)
  Receive Date: 20180511
  Receipt Date: 20180511
  Transmission Date: 20180711
  Serious: Yes (Hospitalization, Other)
  Sender: FDA-Public Use
  Company Number: ES-SA-2018SA123900

PATIENT
  Age: 49 Year
  Sex: Male

DRUGS (1)
  1. LANTUS [Suspect]
     Active Substance: INSULIN GLARGINE
     Indication: TYPE 2 DIABETES MELLITUS
     Route: 051

REACTIONS (10)
  - Blister [Unknown]
  - Burning sensation [Unknown]
  - Drug dose omission [Unknown]
  - Osteonecrosis [Unknown]
  - Melanocytic naevus [Unknown]
  - Pain in extremity [Unknown]
  - Ulcer [Recovering/Resolving]
  - Peripheral vascular disorder [Unknown]
  - Sensory loss [Unknown]
  - Weight increased [Unknown]

NARRATIVE: CASE EVENT DATE: 201609
